FAERS Safety Report 18784063 (Version 3)
Quarter: 2021Q2

REPORT INFORMATION
  Report Type: Spontaneous
  Country: US (occurrence: US)
  Receive Date: 20210125
  Receipt Date: 20210503
  Transmission Date: 20210717
  Serious: Yes (Hospitalization)
  Sender: FDA-Public Use
  Company Number: US-PFIZER INC-2019533760

PATIENT
  Age: 88 Year
  Sex: Female

DRUGS (1)
  1. PREMARIN [Suspect]
     Active Substance: ESTROGENS, CONJUGATED
     Dosage: 0.625 MG, 1X/DAY

REACTIONS (3)
  - Thinking abnormal [Unknown]
  - Pneumonia [Unknown]
  - Thyroid disorder [Unknown]
